FAERS Safety Report 20491755 (Version 2)
Quarter: 2022Q1

REPORT INFORMATION
  Report Type: Report from Study
  Country: DE (occurrence: DE)
  Receive Date: 20220218
  Receipt Date: 20220302
  Transmission Date: 20220423
  Serious: Yes (Hospitalization)
  Sender: FDA-Public Use
  Company Number: DE-JNJFOC-20211134809

PATIENT
  Age: 60 Year
  Weight: 63.4 kg

DRUGS (13)
  1. DARATUMUMAB [Suspect]
     Active Substance: DARATUMUMAB
     Indication: Plasma cell myeloma
     Route: 058
     Dates: start: 20211109
  2. BENZOCAINE [Concomitant]
     Active Substance: BENZOCAINE
     Indication: Toothache
     Route: 048
     Dates: start: 20211114, end: 20211114
  3. SULFAMETHOXAZOLE\TRIMETHOPRIM [Concomitant]
     Active Substance: SULFAMETHOXAZOLE\TRIMETHOPRIM
     Indication: Infection prophylaxis
     Route: 048
     Dates: start: 202107
  4. VALTREX [Concomitant]
     Active Substance: VALACYCLOVIR HYDROCHLORIDE
     Indication: Prophylaxis
     Route: 048
     Dates: start: 202107
  5. FOLIC ACID [Concomitant]
     Active Substance: FOLIC ACID
     Indication: Vitamin supplementation
     Route: 048
     Dates: start: 202107
  6. PAMIDRONATE DISODIUM [Concomitant]
     Active Substance: PAMIDRONATE DISODIUM
     Indication: Osteoporosis prophylaxis
     Route: 042
     Dates: start: 2019
  7. SODIUM CHLORIDE [Concomitant]
     Active Substance: SODIUM CHLORIDE
     Indication: Supportive care
     Dates: start: 20211115, end: 20211118
  8. JONOSTERIL [CALCIUM ACETATE;MAGNESIUM ACETATE TETRAHYDRATE;POTASSIUM A [Concomitant]
     Indication: Nutritional supplementation
     Route: 042
     Dates: start: 20211114, end: 20211118
  9. ENOXAPARIN SODIUM [Concomitant]
     Active Substance: ENOXAPARIN SODIUM
     Indication: Thrombosis prophylaxis
     Route: 058
     Dates: start: 20211114, end: 20211117
  10. PIRITRAMID HAMELN [Concomitant]
     Indication: Toothache
     Route: 042
     Dates: start: 20211114, end: 20211114
  11. CHOLECALCIFEROL [Concomitant]
     Active Substance: CHOLECALCIFEROL
     Indication: Vitamin supplementation
     Route: 048
     Dates: start: 20211122
  12. ELIDEL [Concomitant]
     Active Substance: PIMECROLIMUS
     Indication: Erythema
     Dosage: FACE
     Route: 061
     Dates: start: 20211122
  13. ONDANSETRON CARINOPHARM [Concomitant]
     Indication: Nausea
     Route: 042
     Dates: start: 20211117, end: 20211117

REACTIONS (1)
  - Infection [Recovered/Resolved]

NARRATIVE: CASE EVENT DATE: 20211113
